FAERS Safety Report 6704291-3 (Version None)
Quarter: 2010Q2

REPORT INFORMATION
  Report Type: 
  Country: None (occurrence: None)
  Receive Date: 20100430
  Receipt Date: 20100426
  Transmission Date: 20101027
  Serious: Yes (Hospitalization)
  Sender: FDA-Public Use
  Company Number: JP-ROCHE-683683

PATIENT
  Sex: Female
  Weight: 43.6 kg

DRUGS (13)
  1. TOCILIZUMAB [Suspect]
     Indication: RHEUMATOID ARTHRITIS
     Route: 041
     Dates: start: 20090715, end: 20090715
  2. TOCILIZUMAB [Suspect]
     Route: 041
     Dates: start: 20090812, end: 20090812
  3. TOCILIZUMAB [Suspect]
     Route: 041
     Dates: start: 20090909, end: 20090909
  4. TOCILIZUMAB [Suspect]
     Route: 041
     Dates: start: 20091014, end: 20091014
  5. TOCILIZUMAB [Suspect]
     Route: 041
     Dates: start: 20091111, end: 20091111
  6. TOCILIZUMAB [Suspect]
     Route: 041
     Dates: start: 20091209, end: 20091209
  7. TOCILIZUMAB [Suspect]
     Dosage: DRUG DISCONTINUED.
     Route: 041
     Dates: start: 20100113, end: 20100113
  8. ISONIAZID [Concomitant]
     Dosage: DOSE FORM: PERORAL AGENT
     Route: 048
     Dates: start: 20090615
  9. PREDNISOLONE [Concomitant]
     Dosage: DOSE FORM: PERORAL AGENT
     Route: 048
     Dates: end: 20090903
  10. PREDNISOLONE [Concomitant]
     Dosage: DOSE FORM: PERORAL AGENT
     Route: 048
     Dates: start: 20090904
  11. ETODOLAC [Concomitant]
     Route: 048
     Dates: end: 20090929
  12. POSTERISAN [Concomitant]
     Dosage: REPORTED DRUG: POSTERISAN(POSTERISAN FORTE),DOSE FORM: OINTMENT AND CREAM
     Route: 061
  13. ACTONEL [Concomitant]
     Dosage: REPORTED DRUG: ACTONEL(RISEDRONATE)
     Route: 048

REACTIONS (1)
  - PRINZMETAL ANGINA [None]
